FAERS Safety Report 23851644 (Version 2)
Quarter: 2024Q3

REPORT INFORMATION
  Report Type: Spontaneous
  Country: US (occurrence: US)
  Receive Date: 20240514
  Receipt Date: 20240726
  Transmission Date: 20241016
  Serious: No
  Sender: UNITED THERAPEUTICS
  Company Number: US-UNITED THERAPEUTICS-UNT-2024-013633

PATIENT

DRUGS (1)
  1. REMODULIN [Suspect]
     Active Substance: TREPROSTINIL
     Indication: Pulmonary arterial hypertension
     Dosage: UNK, CONTINUING

REACTIONS (4)
  - Infusion site reaction [Unknown]
  - Infusion site pain [Not Recovered/Not Resolved]
  - Device maintenance issue [Unknown]
  - Patient dissatisfaction with device [Unknown]
